FAERS Safety Report 19265108 (Version 1)
Quarter: 2021Q2

REPORT INFORMATION
  Report Type: Spontaneous
  Country: AU (occurrence: AU)
  Receive Date: 20210517
  Receipt Date: 20210517
  Transmission Date: 20210717
  Serious: Yes (Other)
  Sender: FDA-Public Use
  Company Number: AU-BAYER-2021-140429

PATIENT
  Age: 24 Year
  Sex: Female

DRUGS (1)
  1. MIRENA [Suspect]
     Active Substance: LEVONORGESTREL
     Dosage: 20 ?G PER DAY CONTINUOUSLY
     Route: 015
     Dates: start: 202011, end: 202102

REACTIONS (3)
  - Pregnancy with contraceptive device [Not Recovered/Not Resolved]
  - Drug ineffective [None]
  - Device expulsion [Recovered/Resolved]

NARRATIVE: CASE EVENT DATE: 202102
